FAERS Safety Report 6576529-7 (Version None)
Quarter: 2010Q1

REPORT INFORMATION
  Report Type: 
  Country: None (occurrence: None)
  Receive Date: 20100210
  Receipt Date: 20100201
  Transmission Date: 20100710
  Serious: Yes (Hospitalization)
  Sender: FDA-Public Use
  Company Number: FR-ASTRAZENECA-2010SE04839

PATIENT
  Age: 470 Month
  Sex: Male

DRUGS (6)
  1. NEXIUM [Suspect]
     Route: 042
     Dates: start: 20091202, end: 20100111
  2. NEXIUM [Suspect]
     Route: 042
     Dates: start: 20100112
  3. DALACINE [Suspect]
     Route: 042
     Dates: start: 20091225, end: 20100105
  4. OFLOCET [Concomitant]
     Dates: start: 20091217, end: 20091222
  5. LASILIX [Concomitant]
  6. ALDACTONE [Concomitant]
     Route: 048
     Dates: start: 20100102

REACTIONS (2)
  - BLOOD BILIRUBIN INCREASED [None]
  - LIVER INJURY [None]
